FAERS Safety Report 21242334 (Version 2)
Quarter: 2022Q3

REPORT INFORMATION
  Report Type: Spontaneous
  Country: US (occurrence: US)
  Receive Date: 20220823
  Receipt Date: 20220915
  Transmission Date: 20221027
  Serious: Yes (Other)
  Sender: FDA-Public Use
  Company Number: US-009507513-2208USA007051

PATIENT
  Age: 74 Year
  Sex: Male

DRUGS (3)
  1. KEYTRUDA [Suspect]
     Active Substance: PEMBROLIZUMAB
     Indication: Lung squamous cell carcinoma metastatic
  2. CARBOPLATIN [Concomitant]
     Active Substance: CARBOPLATIN
     Indication: Lung squamous cell carcinoma metastatic
  3. PACLITAXEL [Concomitant]
     Active Substance: PACLITAXEL
     Indication: Lung squamous cell carcinoma metastatic

REACTIONS (3)
  - Anti-glomerular basement membrane disease [Unknown]
  - Immune-mediated nephritis [Unknown]
  - End stage renal disease [Unknown]
